FAERS Safety Report 18335098 (Version 1)
Quarter: 2020Q4

REPORT INFORMATION
  Report Type: Spontaneous
  Country: US (occurrence: US)
  Receive Date: 20201001
  Receipt Date: 20201001
  Transmission Date: 20210113
  Serious: Yes (Other)
  Sender: FDA-Public Use
  Company Number: None

PATIENT
  Sex: Female
  Weight: 72 kg

DRUGS (6)
  1. FERGON [Concomitant]
     Active Substance: FERROUS GLUCONATE
  2. CENTRUM SILVER [Concomitant]
     Active Substance: MINERALS\VITAMINS
  3. IMIPRAMINE [Suspect]
     Active Substance: IMIPRAMINE
     Indication: NERVOUS SYSTEM DISORDER
  4. RESTORIL 15 MG [Concomitant]
  5. VITAMIN D3 [Concomitant]
     Active Substance: CHOLECALCIFEROL
  6. FIORICET [Concomitant]
     Active Substance: ACETAMINOPHEN\BUTALBITAL\CAFFEINE

REACTIONS (5)
  - Hyperhidrosis [None]
  - Vision blurred [None]
  - Eye irritation [None]
  - Heart rate increased [None]
  - Ocular hyperaemia [None]
